FAERS Safety Report 25501546 (Version 1)
Quarter: 2025Q3

REPORT INFORMATION
  Report Type: Spontaneous
  Country: JP (occurrence: JP)
  Receive Date: 20250701
  Receipt Date: 20250701
  Transmission Date: 20251021
  Serious: Yes (Death)
  Sender: MERCK SHARP & DOHME LLC
  Company Number: JP-009507513-2301642

PATIENT
  Sex: Male

DRUGS (2)
  1. KEYTRUDA [Suspect]
     Active Substance: PEMBROLIZUMAB
     Indication: Transitional cell carcinoma
     Route: 041
  2. PADCEV [Concomitant]
     Active Substance: ENFORTUMAB VEDOTIN-EJFV
     Route: 065

REACTIONS (1)
  - Interstitial lung disease [Fatal]
